FAERS Safety Report 15541266 (Version 1)
Quarter: 2018Q4

REPORT INFORMATION
  Report Type: Spontaneous
  Country: US (occurrence: US)
  Receive Date: 20181023
  Receipt Date: 20181023
  Transmission Date: 20190205
  Serious: Yes (Other)
  Sender: FDA-Public Use
  Company Number: US-ABBVIE-18K-163-2526424-00

PATIENT
  Age: 33 Year
  Sex: Female

DRUGS (1)
  1. HUMIRA [Suspect]
     Active Substance: ADALIMUMAB
     Indication: HIDRADENITIS
     Route: 058

REACTIONS (8)
  - Clostridium difficile infection [Unknown]
  - Hidradenitis [Unknown]
  - Discharge [Unknown]
  - Impaired healing [Unknown]
  - Skin necrosis [Unknown]
  - Anxiety [Unknown]
  - Apparent death [Unknown]
  - Fear [Unknown]

NARRATIVE: CASE EVENT DATE: 2017
